FAERS Safety Report 9844281 (Version 1)
Quarter: 2014Q1

REPORT INFORMATION
  Report Type: Spontaneous
  Country: GB (occurrence: GB)
  Receive Date: 20140127
  Receipt Date: 20140127
  Transmission Date: 20141002
  Serious: Yes (Other)
  Sender: FDA-Public Use
  Company Number: GB-ACCORD-021367

PATIENT
  Age: 65 Year
  Sex: Female
  Weight: 62 kg

DRUGS (3)
  1. LISINOPRIL [Suspect]
     Indication: HYPERTENSION
     Route: 048
     Dates: start: 20131030, end: 20131220
  2. ESTRADERM [Concomitant]
     Dosage: LONG TERM.
     Route: 062
  3. BENDROFLUMETHIAZIDE [Concomitant]
     Indication: HYPERTENSION
     Dosage: LONG TERM.
     Route: 048

REACTIONS (2)
  - Memory impairment [Recovered/Resolved]
  - Product substitution issue [Unknown]
